FAERS Safety Report 10574380 (Version 4)
Quarter: 2015Q2

REPORT INFORMATION
  Report Type: Report from Study
  Country: US (occurrence: US)
  Receive Date: 20141110
  Receipt Date: 20150501
  Transmission Date: 20150821
  Serious: Yes (Death, Hospitalization)
  Sender: FDA-Public Use
  Company Number: US-009507513-1407USA002732

PATIENT
  Age: 71 Year
  Sex: Male
  Weight: 113.8 kg

DRUGS (18)
  1. PEMBROLIZUMAB. [Suspect]
     Active Substance: PEMBROLIZUMAB
     Dosage: 10 MG/KG, QOW
     Route: 042
     Dates: start: 20140605, end: 20140605
  2. COMPAZINE [Concomitant]
     Active Substance: PROCHLORPERAZINE MALEATE
     Indication: NAUSEA
     Dosage: TOTAL DAILY DOSE: 10 MG, PRN
     Route: 048
     Dates: start: 20120111
  3. PRILOSEC [Concomitant]
     Active Substance: OMEPRAZOLE MAGNESIUM
     Indication: GASTROOESOPHAGEAL REFLUX DISEASE
  4. ATIVAN [Concomitant]
     Active Substance: LORAZEPAM
     Indication: SLEEP DISORDER THERAPY
     Dosage: 1 MG, QD
     Route: 048
     Dates: start: 20140130
  5. NEURONTIN [Concomitant]
     Active Substance: GABAPENTIN
     Indication: NEUROPATHY PERIPHERAL
     Dosage: 300 MG, BID
     Route: 048
     Dates: start: 20120806
  6. PEMBROLIZUMAB. [Suspect]
     Active Substance: PEMBROLIZUMAB
     Dosage: 10 MG/KG, QOW
     Route: 042
     Dates: start: 20140626, end: 20140626
  7. VENTOLIN HFA [Concomitant]
     Active Substance: ALBUTEROL SULFATE
     Indication: ASTHMA
     Dosage: DAILY 108 MICROGRAM, PRN, FORMULATION: INHALANT
     Route: 055
     Dates: start: 198901
  8. OMEGA-3 MARINE TRIGLYCERIDES [Concomitant]
     Active Substance: FISH OIL
     Indication: ROUTINE HEALTH MAINTENANCE
     Dosage: 1 TABLET, QD
     Route: 048
     Dates: start: 20120222
  9. ENSURE [Concomitant]
     Active Substance: AMINO ACIDS\DEXTROSE\ELECTROLYTES NOS\SOYBEAN OIL\VITAMINS
     Indication: ROUTINE HEALTH MAINTENANCE
     Dosage: 1 UNIT, QD
     Route: 048
     Dates: start: 20120118
  10. PYRIDOXINE [Concomitant]
     Active Substance: PYRIDOXINE
     Indication: ROUTINE HEALTH MAINTENANCE
     Dosage: 100 MG, BID
     Route: 048
     Dates: start: 20120806
  11. PREDNISONE. [Concomitant]
     Active Substance: PREDNISONE
     Indication: MYALGIA
     Dosage: 10 MG, QD
     Route: 048
     Dates: start: 20140326
  12. EMLA [Concomitant]
     Active Substance: LIDOCAINE\PRILOCAINE
     Indication: PAIN PROPHYLAXIS
     Dosage: DAILY 1 UNIT, PRN
     Route: 061
     Dates: start: 20120125
  13. VITAMINS (UNSPECIFIED) [Concomitant]
     Active Substance: VITAMINS
     Indication: ROUTINE HEALTH MAINTENANCE
     Dosage: 1 DF, QD
     Route: 048
     Dates: start: 20120118
  14. ADVAIR HFA [Concomitant]
     Active Substance: FLUTICASONE PROPIONATE\SALMETEROL XINAFOATE
     Indication: ASTHMA
     Dosage: 250 MICROGRAM, BID, FORMULATION: INHALANT
     Route: 055
     Dates: start: 198901
  15. PEMBROLIZUMAB. [Suspect]
     Active Substance: PEMBROLIZUMAB
     Indication: GASTRIC CANCER
     Dosage: 10 MG/KG, QOW
     Route: 042
     Dates: start: 20131209, end: 20140522
  16. CALCIUM D3 [Concomitant]
     Active Substance: CALCIUM\CHOLECALCIFEROL
     Indication: ROUTINE HEALTH MAINTENANCE
     Dosage: 1 TABLET, QD
     Route: 048
     Dates: start: 20120219
  17. IMODIUM [Concomitant]
     Active Substance: LOPERAMIDE HYDROCHLORIDE
     Indication: DIARRHOEA
     Dosage: DAILY 1 TABLET, PRN
     Route: 048
     Dates: start: 20120215
  18. PRILOSEC [Concomitant]
     Active Substance: OMEPRAZOLE MAGNESIUM
     Indication: ABDOMINAL PAIN LOWER
     Dosage: 20 MG, QD
     Route: 048
     Dates: start: 20120222

REACTIONS (2)
  - Tracheomalacia [Recovered/Resolved]
  - Hypoxia [Fatal]

NARRATIVE: CASE EVENT DATE: 20140609
